FAERS Safety Report 6942997-1 (Version None)
Quarter: 2010Q3

REPORT INFORMATION
  Report Type: 
  Country: None (occurrence: None)
  Receive Date: 20100824
  Receipt Date: 20100824
  Transmission Date: 20110219
  Serious: Yes (Life-Threatening, Hospitalization, Disabling)
  Sender: FDA-Public Use
  Company Number: None

PATIENT
  Age: 55 Year
  Sex: Female
  Weight: 99.7913 kg

DRUGS (2)
  1. VANCOMYCIN [Suspect]
     Indication: POST PROCEDURAL INFECTION
     Dosage: 2 A DAY INTRAVENOUS
     Route: 042
     Dates: start: 20100629, end: 20100723
  2. INVANZ [Suspect]
     Indication: STAPHYLOCOCCAL INFECTION
     Dosage: 1 A DAY INTRAVENOUS
     Route: 042
     Dates: start: 20100629, end: 20100717

REACTIONS (1)
  - DRUG RASH WITH EOSINOPHILIA AND SYSTEMIC SYMPTOMS [None]
